FAERS Safety Report 9580153 (Version 2)
Quarter: 2013Q4

REPORT INFORMATION
  Report Type: Spontaneous
  Country: US (occurrence: US)
  Receive Date: 20131002
  Receipt Date: 20131028
  Transmission Date: 20140711
  Serious: Yes (Other)
  Sender: FDA-Public Use
  Company Number: US-BRISTOL-MYERS SQUIBB COMPANY-19414648

PATIENT
  Age: 74 Year
  Sex: Female

DRUGS (2)
  1. ERBITUX [Suspect]
     Indication: COLORECTAL CANCER
     Dosage: SEP032013
     Route: 042
     Dates: start: 20130826
  2. ERBITUX [Suspect]
     Indication: COLON CANCER
     Dosage: SEP032013
     Route: 042
     Dates: start: 20130826

REACTIONS (1)
  - Asthma [Unknown]
